FAERS Safety Report 13341318 (Version 1)
Quarter: 2017Q1

REPORT INFORMATION
  Report Type: Spontaneous
  Country: JP (occurrence: JP)
  Receive Date: 20170316
  Receipt Date: 20170316
  Transmission Date: 20170428
  Serious: Yes (Other)
  Sender: FDA-Public Use
  Company Number: PHJP2017JP008377

PATIENT

DRUGS (5)
  1. TEGRETOL [Interacting]
     Active Substance: CARBAMAZEPINE
     Dosage: 1 G, QD
     Route: 048
  2. TEGRETOL [Interacting]
     Active Substance: CARBAMAZEPINE
     Dosage: 1.4 G, QD
     Route: 048
  3. CLONAZEPAM. [Interacting]
     Active Substance: CLONAZEPAM
     Indication: PRODUCT USED FOR UNKNOWN INDICATION
     Dosage: UNK
     Route: 065
  4. TEGRETOL [Suspect]
     Active Substance: CARBAMAZEPINE
     Indication: PRODUCT USED FOR UNKNOWN INDICATION
     Dosage: UNK
     Route: 048
  5. TEGRETOL [Interacting]
     Active Substance: CARBAMAZEPINE
     Dosage: 1.4 G, QD
     Route: 048

REACTIONS (5)
  - Seizure [Unknown]
  - Drug level changed [Unknown]
  - Drug interaction [Unknown]
  - Insomnia [Unknown]
  - Agitation [Unknown]
